FAERS Safety Report 8274926-5 (Version None)
Quarter: 2012Q1

REPORT INFORMATION
  Report Type: 
  Country: None (occurrence: None)
  Receive Date: 20120309
  Receipt Date: 20111230
  Transmission Date: 20120608
  Serious: Yes (Other)
  Sender: FDA-Public Use
  Company Number: TH-2012-00031

PATIENT
  Age: 48 Year
  Sex: Male

DRUGS (3)
  1. EGRIFTA [Suspect]
     Indication: LIPODYSTROPHY ACQUIRED
     Dosage: 1 IN 1 D, SUBCUTANEOUS
     Route: 058
     Dates: start: 20111001, end: 20111201
  2. WELLBUTRIN [Concomitant]
  3. LEXAPRO [Concomitant]

REACTIONS (10)
  - SUICIDAL BEHAVIOUR [None]
  - PNEUMONITIS [None]
  - PSYCHOTIC DISORDER [None]
  - DEPRESSION [None]
  - NAUSEA [None]
  - AGITATION [None]
  - HYPERSOMNIA [None]
  - ADVERSE DRUG REACTION [None]
  - DIZZINESS [None]
  - AGGRESSION [None]
